FAERS Safety Report 5076613-3 (Version None)
Quarter: 2006Q3

REPORT INFORMATION
  Report Type: 
  Country: None (occurrence: None)
  Receive Date: 20060807
  Receipt Date: 20060719
  Transmission Date: 20061208
  Serious: Yes (Hospitalization, Other)
  Sender: FDA-Public Use
  Company Number: 163-21880-06071001

PATIENT
  Age: 78 Year
  Sex: Female

DRUGS (2)
  1. REVLIMID [Suspect]
     Indication: MYELODYSPLASTIC SYNDROME
     Dosage: 1 IN 1 D, ORAL
     Route: 048
     Dates: start: 20060520, end: 20060630
  2. REVLIMID [Suspect]
     Indication: MYELODYSPLASTIC SYNDROME
     Dosage: 1 IN 1 D, ORAL
     Route: 048
     Dates: start: 20060712

REACTIONS (3)
  - CHOLECYSTITIS INFECTIVE [None]
  - CHOLELITHIASIS [None]
  - PLATELET COUNT DECREASED [None]
